FAERS Safety Report 20835634 (Version 5)
Quarter: 2024Q3

REPORT INFORMATION
  Report Type: Spontaneous
  Country: US (occurrence: US)
  Receive Date: 20220516
  Receipt Date: 20240812
  Transmission Date: 20241016
  Serious: No
  Sender: PFIZER
  Company Number: US-PFIZER INC-202200574845

PATIENT
  Age: 36 Year
  Sex: Female
  Weight: 83.9 kg

DRUGS (1)
  1. XELJANZ XR [Suspect]
     Active Substance: TOFACITINIB CITRATE
     Dosage: 11 MG, DAILY
     Route: 048
     Dates: start: 2019

REACTIONS (4)
  - Pain in extremity [Unknown]
  - Memory impairment [Unknown]
  - Arthritis [Unknown]
  - Loss of personal independence in daily activities [Unknown]
